FAERS Safety Report 15006597 (Version 1)
Quarter: 2018Q2

REPORT INFORMATION
  Report Type: Report from Study
  Country: US (occurrence: US)
  Receive Date: 20180613
  Receipt Date: 20180613
  Transmission Date: 20180711
  Serious: No
  Sender: FDA-Public Use
  Company Number: US-US WORLDMEDS, LLC-USW201709-001361

PATIENT
  Sex: Male
  Weight: 95.25 kg

DRUGS (5)
  1. APOKYN [Suspect]
     Active Substance: APOMORPHINE HYDROCHLORIDE
     Indication: PARKINSON^S DISEASE
     Route: 058
     Dates: start: 20150622
  2. LEXAPRO [Suspect]
     Active Substance: ESCITALOPRAM OXALATE
  3. NUPLAZID [Suspect]
     Active Substance: PIMAVANSERIN TARTRATE
  4. MIRAPEX [Suspect]
     Active Substance: PRAMIPEXOLE DIHYDROCHLORIDE
  5. SINEMET [Suspect]
     Active Substance: CARBIDOPA\LEVODOPA

REACTIONS (2)
  - Delusion [Unknown]
  - Agitation [Unknown]
